FAERS Safety Report 7668861-0 (Version None)
Quarter: 2011Q3

REPORT INFORMATION
  Report Type: 
  Country: None (occurrence: None)
  Receive Date: 20110808
  Receipt Date: 20110806
  Transmission Date: 20111222
  Serious: No
  Sender: FDA-Public Use
  Company Number: US-PFIZER INC-2011180222

PATIENT
  Sex: Female
  Weight: 47.619 kg

DRUGS (3)
  1. LIPITOR [Suspect]
     Indication: BLOOD CHOLESTEROL INCREASED
     Dosage: 10 MG, DAILY
     Route: 048
     Dates: start: 20110101, end: 20110805
  2. VITAMIN TAB [Concomitant]
     Dosage: UNK
  3. FOSAMAX [Concomitant]
     Indication: OSTEOPOROSIS
     Dosage: UNK

REACTIONS (2)
  - FLATULENCE [None]
  - ABDOMINAL PAIN UPPER [None]
